FAERS Safety Report 8621690-3 (Version None)
Quarter: 2012Q3

REPORT INFORMATION
  Report Type: 
  Country: None (occurrence: None)
  Receive Date: 20120825
  Receipt Date: 20120814
  Transmission Date: 20120928
  Serious: Yes (Death, Hospitalization)
  Sender: FDA-Public Use
  Company Number: JP-009507513-1208JPN005006

PATIENT

DRUGS (2)
  1. BETAMETHASONE [Suspect]
     Dosage: 4 MG, QD
  2. TEMODAL [Suspect]
     Indication: GLIOBLASTOMA

REACTIONS (4)
  - PNEUMOCYSTIS JIROVECI PNEUMONIA [None]
  - DISSEMINATED INTRAVASCULAR COAGULATION [None]
  - SHOCK [None]
  - MULTI-ORGAN FAILURE [None]
